FAERS Safety Report 8402113-6 (Version None)
Quarter: 2012Q2

REPORT INFORMATION
  Report Type: 
  Country: None (occurrence: None)
  Receive Date: 20120601
  Receipt Date: 20120528
  Transmission Date: 20120825
  Serious: Yes (Hospitalization)
  Sender: FDA-Public Use
  Company Number: US-SANOFI-AVENTIS-2012SA038437

PATIENT
  Age: 63 Year
  Sex: Male

DRUGS (4)
  1. OXALIPLATIN [Suspect]
     Dosage: DAYS 1,15, 29
     Route: 065
     Dates: end: 20070201
  2. CAPECITABINE [Suspect]
     Dosage: MONDAY TO FRIDAY ON DAYS OF RADIATION
     Route: 048
     Dates: end: 20070301
  3. THERAPEUTIC RADIOPHARMACEUTICALS [Suspect]
     Dosage: ADDITIONAL BOOST OF 1080 CGY GIVEN TO PRIMARY TUMOR SITE, TOTAL DOSE 5040CGY
     Route: 065
     Dates: end: 20070301
  4. THERAPEUTIC RADIOPHARMACEUTICALS [Suspect]
     Dosage: 3960 CGY FRACTIONS VIA ANTERIO-POSTERIOR/POSTERIO-ANTERIOR TECHNIQUE
     Route: 065
     Dates: end: 20070301

REACTIONS (5)
  - ACUTE MYELOID LEUKAEMIA [None]
  - BONE PAIN [None]
  - FATIGUE [None]
  - THROMBOCYTOPENIA [None]
  - LEUKOCYTOSIS [None]
